FAERS Safety Report 10636385 (Version 1)
Quarter: 2014Q4

REPORT INFORMATION
  Report Type: Spontaneous
  Country: GB (occurrence: GB)
  Receive Date: 20141207
  Receipt Date: 20141207
  Transmission Date: 20150529
  Serious: Yes (Hospitalization, Other)
  Sender: FDA-Public Use
  Company Number: GB-UCBSA-2014020455

PATIENT
  Age: 21 Year
  Sex: Female

DRUGS (2)
  1. KEPPRA [Suspect]
     Active Substance: LEVETIRACETAM
     Indication: EPILEPSY
     Route: 048
  2. METRONIDAZOLE. [Interacting]
     Active Substance: METRONIDAZOLE
     Indication: GINGIVITIS ULCERATIVE
     Dosage: 400 MG, 3X/DAY (TID)
     Route: 048
     Dates: start: 20140923, end: 20140929

REACTIONS (5)
  - Psychotic disorder [Recovered/Resolved]
  - Drug interaction [Unknown]
  - Intentional self-injury [Recovered/Resolved]
  - Epilepsy [Recovered/Resolved]
  - Surgery [Unknown]

NARRATIVE: CASE EVENT DATE: 201409
